FAERS Safety Report 5611901-0 (Version None)
Quarter: 2008Q1

REPORT INFORMATION
  Report Type: 
  Country: None (occurrence: None)
  Receive Date: 20080204
  Receipt Date: 20080128
  Transmission Date: 20080703
  Serious: Yes (Other)
  Sender: FDA-Public Use
  Company Number: US-JNJFOC-20070903154

PATIENT
  Sex: Female
  Weight: 77.11 kg

DRUGS (3)
  1. REMICADE [Suspect]
     Indication: RHEUMATOID ARTHRITIS
     Route: 042
  2. NEXAVAR [Concomitant]
  3. DECADRON [Concomitant]
     Indication: ARTHRITIS

REACTIONS (2)
  - LUNG NEOPLASM [None]
  - PULMONARY FIBROSIS [None]
